FAERS Safety Report 6222721-0 (Version None)
Quarter: 2009Q2

REPORT INFORMATION
  Report Type: 
  Country: None (occurrence: None)
  Receive Date: 20090611
  Receipt Date: 20090602
  Transmission Date: 20091009
  Serious: Yes (Life-Threatening, Hospitalization)
  Sender: FDA-Public Use
  Company Number: ES-PFIZER INC-2009221915

PATIENT
  Age: 65 Year

DRUGS (6)
  1. NEURONTIN [Suspect]
     Indication: NEURALGIA
     Dosage: 600 MG, 3X/DAY
     Route: 048
     Dates: start: 20090402, end: 20090406
  2. DURAGESIC-100 [Suspect]
     Indication: PAIN
     Dosage: UNK
     Route: 062
     Dates: start: 20090402, end: 20090406
  3. TRONOXAL [Suspect]
     Indication: LEIOMYOSARCOMA
     Dosage: 1 UNK, CYCLIC
     Route: 042
     Dates: start: 20090126, end: 20090405
  4. OMEPRAZOL [Concomitant]
     Indication: PROPHYLAXIS
     Dosage: 20 UNK, UNK
     Route: 048
     Dates: start: 20090402
  5. ENOXAPARIN SODIUM [Concomitant]
     Indication: THROMBOSIS PROPHYLAXIS
     Dosage: 40 MG, 1X/DAY
     Route: 058
     Dates: start: 20090402
  6. VENLAFAXINE HCL [Concomitant]
     Indication: DEPRESSION
     Dosage: 37.5 MG, 2X/DAY
     Route: 048
     Dates: start: 20090402

REACTIONS (3)
  - AGITATION [None]
  - COMA [None]
  - MYOCLONUS [None]
